FAERS Safety Report 6683248-5 (Version None)
Quarter: 2010Q2

REPORT INFORMATION
  Report Type: 
  Country: None (occurrence: None)
  Receive Date: 20100415
  Receipt Date: 20100402
  Transmission Date: 20101027
  Serious: Yes (Hospitalization)
  Sender: FDA-Public Use
  Company Number: FR-JNJFOC-20100403044

PATIENT
  Age: 80 Year
  Sex: Female

DRUGS (9)
  1. IXPRIM [Suspect]
     Indication: DRUG USE FOR UNKNOWN INDICATION
     Dosage: 4 TIMES A DAY
     Route: 048
  2. TAHOR [Suspect]
     Indication: DRUG USE FOR UNKNOWN INDICATION
     Route: 048
  3. DEROXAT [Suspect]
     Indication: DRUG USE FOR UNKNOWN INDICATION
     Route: 048
  4. LOXAPAC [Suspect]
     Indication: DEMENTIA
     Route: 048
  5. OMEPRAZOLE [Concomitant]
  6. KARDEGIC [Concomitant]
  7. LEVOTHYROX [Concomitant]
  8. COVERSYL [Concomitant]
  9. METOJECT [Concomitant]
     Indication: PSORIASIS
     Dosage: PER WEEK

REACTIONS (1)
  - CYTOLYTIC HEPATITIS [None]
